FAERS Safety Report 12625283 (Version 1)
Quarter: 2016Q3

REPORT INFORMATION
  Report Type: Spontaneous
  Country: US (occurrence: US)
  Receive Date: 20160805
  Receipt Date: 20160805
  Transmission Date: 20161109
  Serious: Yes (Other)
  Sender: FDA-Public Use
  Company Number: US-TEVA-680612USA

PATIENT
  Sex: Female

DRUGS (1)
  1. AMPHETAMINE W/DEXTROAMPHETAMINE [Suspect]
     Active Substance: AMPHETAMINE SULFATE\DEXTROAMPHETAMINE
     Indication: ATTENTION DEFICIT/HYPERACTIVITY DISORDER
     Route: 065
     Dates: start: 201507

REACTIONS (8)
  - Caesarean section [Unknown]
  - Anxiety [Unknown]
  - Apathy [Unknown]
  - Foetal exposure timing unspecified [Unknown]
  - Somnolence [Unknown]
  - Depression [Unknown]
  - Drug ineffective [Unknown]
  - Premature delivery [Unknown]
